FAERS Safety Report 18301790 (Version 1)
Quarter: 2020Q3

REPORT INFORMATION
  Report Type: Not Available
  Country: US (occurrence: US)
  Receive Date: 20200923
  Receipt Date: 20200923
  Transmission Date: 20201103
  Serious: Yes (Hospitalization, Other)
  Sender: FDA-Public Use
  Company Number: US-NEUROCRINE BIOSCIENCES INC.-2020NBI03393

PATIENT
  Age: 65 Year
  Sex: Female

DRUGS (2)
  1. INGREZZA [Suspect]
     Active Substance: VALBENAZINE
     Indication: TARDIVE DYSKINESIA
     Route: 048
     Dates: start: 20200326, end: 20200402
  2. INGREZZA [Suspect]
     Active Substance: VALBENAZINE
     Route: 048
     Dates: start: 20200403

REACTIONS (10)
  - Screaming [Unknown]
  - Drug ineffective [Unknown]
  - Osteomyelitis [Not Recovered/Not Resolved]
  - Urinary incontinence [Unknown]
  - Dysphagia [Unknown]
  - Weight decreased [Unknown]
  - Gastrointestinal tube insertion [Recovered/Resolved]
  - Mass [Recovered/Resolved]
  - Staphylococcal infection [Unknown]
  - Hypophagia [Unknown]

NARRATIVE: CASE EVENT DATE: 2020
